FAERS Safety Report 21711522 (Version 1)
Quarter: 2022Q4

REPORT INFORMATION
  Report Type: Spontaneous
  Country: IT (occurrence: IT)
  Receive Date: 20221212
  Receipt Date: 20221212
  Transmission Date: 20230112
  Serious: Yes (Other)
  Sender: FDA-Public Use
  Company Number: None

PATIENT
  Age: 20 Year
  Sex: Male
  Weight: 62 kg

DRUGS (1)
  1. FINASTERIDE [Suspect]
     Active Substance: FINASTERIDE
     Indication: Alopecia
     Dosage: 1 DOSAGE FORM; FORMULATION REPORTED AS TABLET
     Route: 048
     Dates: start: 2014, end: 2015

REACTIONS (3)
  - Erectile dysfunction [Not Recovered/Not Resolved]
  - Premature ejaculation [Not Recovered/Not Resolved]
  - Libido decreased [Not Recovered/Not Resolved]

NARRATIVE: CASE EVENT DATE: 20140101
